FAERS Safety Report 14106417 (Version 1)
Quarter: 2017Q4

REPORT INFORMATION
  Report Type: Spontaneous
  Country: US (occurrence: US)
  Receive Date: 20171018
  Receipt Date: 20171018
  Transmission Date: 20180321
  Serious: No
  Sender: FDA-Public Use
  Company Number: US-AMGEN-USASP2017058770

PATIENT
  Age: 60 Year
  Sex: Female

DRUGS (4)
  1. PROLIA [Suspect]
     Active Substance: DENOSUMAB
     Indication: OSTEOPOROSIS
     Dosage: UNK UNK, UNK
     Route: 065
     Dates: start: 20170127
  2. TRAVATAN [Concomitant]
     Active Substance: TRAVOPROST
     Indication: BORDERLINE GLAUCOMA
  3. VITAMIN D [Concomitant]
     Active Substance: CHOLECALCIFEROL
     Indication: SUPPLEMENTATION THERAPY
  4. CALCIUM [Concomitant]
     Active Substance: CALCIUM
     Indication: SUPPLEMENTATION THERAPY

REACTIONS (12)
  - Muscular weakness [Unknown]
  - Gait disturbance [Unknown]
  - Blister [Recovered/Resolved]
  - Feeling abnormal [Unknown]
  - Loose tooth [Not Recovered/Not Resolved]
  - Bladder discomfort [Unknown]
  - Muscle disorder [Unknown]
  - Drug hypersensitivity [Recovered/Resolved]
  - Scar [Not Recovered/Not Resolved]
  - Groin pain [Unknown]
  - Tooth disorder [Not Recovered/Not Resolved]
  - Genital ulceration [Recovered/Resolved]

NARRATIVE: CASE EVENT DATE: 2017
